FAERS Safety Report 17690186 (Version 4)
Quarter: 2020Q2

REPORT INFORMATION
  Report Type: Spontaneous
  Country: US (occurrence: US)
  Receive Date: 20200421
  Receipt Date: 20200519
  Transmission Date: 20200714
  Serious: Yes (Hospitalization, Other)
  Sender: FDA-Public Use
  Company Number: US-SHIRE-US202013900

PATIENT
  Sex: Female

DRUGS (1)
  1. GATTEX [Suspect]
     Active Substance: TEDUGLUTIDE\WATER
     Indication: SHORT-BOWEL SYNDROME
     Dosage: 0.325 MILLILITER, UNKNOWN
     Route: 058
     Dates: start: 2017

REACTIONS (6)
  - Vascular device infection [Unknown]
  - Fungal infection [Unknown]
  - Bacterial infection [Unknown]
  - Dehydration [Recovering/Resolving]
  - Infection [Unknown]
  - Malaise [Unknown]
